FAERS Safety Report 6123346-8 (Version None)
Quarter: 2009Q1

REPORT INFORMATION
  Report Type: 
  Country: None (occurrence: None)
  Receive Date: 20090318
  Receipt Date: 20090310
  Transmission Date: 20090719
  Serious: Yes (Hospitalization, Other)
  Sender: FDA-Public Use
  Company Number: US-ELI_LILLY_AND_COMPANY-US200812001504

PATIENT
  Sex: Female

DRUGS (18)
  1. HUMATROPE [Suspect]
     Dosage: 0.8 MG, QOD
  2. HUMATROPE [Suspect]
     Dosage: 0.6 MG, QOD
  3. CORTEF [Concomitant]
     Dosage: 20 MG, 2/D
  4. SYNTHROID [Concomitant]
     Dosage: 88 UG, DAILY (1/D)
  5. PREMARIN [Concomitant]
     Dosage: 0.3 MG, DAILY (1/D)
  6. TRAMADOL HCL [Concomitant]
     Dosage: 50 MG, 3/D
  7. ACCOLATE [Concomitant]
     Dosage: 20 MG, 2/D
  8. VESICARE [Concomitant]
     Dosage: 10 MG, DAILY (1/D)
  9. REQUIP [Concomitant]
     Dosage: 1 MG, EACH EVENING
  10. SEROQUEL [Concomitant]
     Dosage: 50 MG, EACH EVENING
  11. MYSOLINE [Concomitant]
     Dosage: 50 MG, EACH EVENING
  12. LOVAZA [Concomitant]
     Dosage: 1 G, DAILY (1/D)
  13. PREVACID [Concomitant]
     Dosage: 30 MG, DAILY (1/D)
  14. DEPAKOTE ER [Concomitant]
     Dosage: 1500 MG, EACH EVENING
     Dates: end: 20081122
  15. CELEXA [Concomitant]
     Dosage: 60 MG, DAILY (1/D)
  16. FOSAMAX [Concomitant]
     Dosage: 70 MG, WEEKLY (1/W)
  17. ALBUTEROL [Concomitant]
     Dosage: UNK, AS NEEDED
  18. ZAFIRLUKAST [Concomitant]
     Dosage: 20 MG, 2/D

REACTIONS (10)
  - ANAEMIA [None]
  - FATIGUE [None]
  - HEADACHE [None]
  - INSULIN-LIKE GROWTH FACTOR DECREASED [None]
  - NORMAL PRESSURE HYDROCEPHALUS [None]
  - ORTHOSTATIC HYPOTENSION [None]
  - ROAD TRAFFIC ACCIDENT [None]
  - SINUS TACHYCARDIA [None]
  - SKIN LACERATION [None]
  - SYNCOPE [None]
